FAERS Safety Report 9250830 (Version 2)
Quarter: 2013Q3

REPORT INFORMATION
  Report Type: Report from Study
  Country: FR (occurrence: FR)
  Receive Date: 20130424
  Receipt Date: 20130904
  Transmission Date: 20140515
  Serious: Yes (Hospitalization, Other)
  Sender: FDA-Public Use
  Company Number: PHHY2013FR008295

PATIENT
  Age: 55 Year
  Sex: Male
  Weight: 79 kg

DRUGS (5)
  1. MYFORTIC [Suspect]
     Indication: IMMUNOSUPPRESSION
     Dosage: 720 MG, BID
     Route: 048
     Dates: start: 20100430
  2. NEORAL [Suspect]
     Indication: IMMUNOSUPPRESSION
     Dosage: 60 MG, BID
     Route: 048
     Dates: start: 20120723
  3. INSPRA [Concomitant]
     Dosage: 50 MG, ONE PER DAY
     Route: 048
     Dates: start: 20121128, end: 20121228
  4. AMLOR [Concomitant]
     Indication: HYPERTENSION
     Dosage: 5 MG, UNK
     Route: 048
     Dates: start: 20121128
  5. LASILIX [Concomitant]
     Indication: OEDEMA
     Dosage: 1000 MG, BID
     Route: 048
     Dates: start: 20130115

REACTIONS (7)
  - Acute pulmonary oedema [Recovered/Resolved]
  - Pulmonary oedema [Recovering/Resolving]
  - Fluid overload [Recovering/Resolving]
  - Cardiac failure [Recovered/Resolved]
  - Proteinuria [Unknown]
  - Renal failure [Unknown]
  - Blood sodium increased [Recovering/Resolving]
